FAERS Safety Report 7507042-8 (Version None)
Quarter: 2011Q2

REPORT INFORMATION
  Report Type: 
  Country: None (occurrence: None)
  Receive Date: 20110526
  Receipt Date: 20110516
  Transmission Date: 20111010
  Serious: Yes (Other)
  Sender: FDA-Public Use
  Company Number: US-UCBSA-016229

PATIENT
  Sex: Female
  Weight: 53 kg

DRUGS (10)
  1. FOLIC ACID [Concomitant]
     Route: 048
     Dates: start: 20040101
  2. ARAVA [Suspect]
     Indication: RHEUMATOID ARTHRITIS
     Dosage: CONTINUING-HER WISH
     Route: 048
     Dates: start: 20070301
  3. SYNTHROID [Concomitant]
     Route: 048
     Dates: start: 19960101
  4. MTX [Concomitant]
     Indication: RHEUMATOID ARTHRITIS
     Dates: start: 20040101
  5. METOPROLOL TARTRATE [Concomitant]
     Route: 048
     Dates: start: 19960101
  6. PLAQUENIL [Concomitant]
     Indication: RHEUMATOID ARTHRITIS
     Route: 048
     Dates: start: 20030301
  7. ASPIRIN [Concomitant]
     Route: 048
     Dates: start: 19960101
  8. SIMVASTATIN [Concomitant]
     Route: 048
     Dates: start: 19960101
  9. CIMZIA [Suspect]
     Indication: RHEUMATOID ARTHRITIS
     Route: 058
     Dates: start: 20100413, end: 20110207
  10. REMIPRIL [Concomitant]
     Route: 048
     Dates: start: 19960101

REACTIONS (3)
  - RASH [None]
  - FOOT FRACTURE [None]
  - CARCINOEMBRYONIC ANTIGEN INCREASED [None]
